FAERS Safety Report 23842233 (Version 1)
Quarter: 2024Q2

REPORT INFORMATION
  Report Type: Spontaneous
  Country: US (occurrence: None)
  Receive Date: 20240509
  Receipt Date: 20240509
  Transmission Date: 20240716
  Serious: Yes (Disabling)
  Sender: FDA-Public Use
  Company Number: None

PATIENT
  Age: 64 Year
  Sex: Male
  Weight: 106.2 kg

DRUGS (1)
  1. NUCALA [Suspect]
     Active Substance: MEPOLIZUMAB

REACTIONS (4)
  - Glycosylated haemoglobin increased [None]
  - Therapeutic product effect decreased [None]
  - Blood triglycerides increased [None]
  - Insulin resistance [None]

NARRATIVE: CASE EVENT DATE: 20240216
